FAERS Safety Report 5842919-0 (Version None)
Quarter: 2008Q3

REPORT INFORMATION
  Report Type: 
  Country: None (occurrence: None)
  Receive Date: 20080813
  Receipt Date: 20080811
  Transmission Date: 20090109
  Serious: Yes (Death)
  Sender: FDA-Public Use
  Company Number: ES-CELGENEUS-144-21880-08080479

PATIENT
  Sex: Male

DRUGS (3)
  1. REVLIMID [Suspect]
     Indication: MYELOFIBROSIS
     Route: 048
     Dates: start: 20071130, end: 20080108
  2. RECOMBINANT EPO [Concomitant]
     Indication: PROPHYLAXIS
     Route: 065
  3. LOW MOLECULAR WEIGHT HEPARIN [Concomitant]
     Indication: THROMBOSIS PROPHYLAXIS
     Route: 065

REACTIONS (5)
  - BRONCHOPNEUMONIA [None]
  - GASTROINTESTINAL NECROSIS [None]
  - MESENTERIC VEIN THROMBOSIS [None]
  - MULTI-ORGAN FAILURE [None]
  - PORTAL VEIN THROMBOSIS [None]
